FAERS Safety Report 8345624-4 (Version None)
Quarter: 2012Q2

REPORT INFORMATION
  Report Type: 
  Country: None (occurrence: None)
  Receive Date: 20120508
  Receipt Date: 20120503
  Transmission Date: 20120825
  Serious: Yes (Hospitalization)
  Sender: FDA-Public Use
  Company Number: FI-MERCK-1204USA03960

PATIENT
  Age: 62 Year
  Sex: Female

DRUGS (2)
  1. FOSAMAX PLUS D [Suspect]
     Indication: PROPHYLAXIS
     Route: 048
     Dates: start: 20060101, end: 20100731
  2. CORTISONE [Concomitant]
     Indication: ARTHRITIS
     Route: 048

REACTIONS (1)
  - HIP FRACTURE [None]
